FAERS Safety Report 12219392 (Version 2)
Quarter: 2016Q2

REPORT INFORMATION
  Report Type: Report from Study
  Country: CA (occurrence: CA)
  Receive Date: 20160329
  Receipt Date: 20160504
  Transmission Date: 20160815
  Serious: Yes (Hospitalization)
  Sender: FDA-Public Use
  Company Number: CA-BIOGEN-2016BI00209619

PATIENT
  Age: 37 Year
  Sex: Female

DRUGS (2)
  1. AVONEX [Suspect]
     Active Substance: INTERFERON BETA-1A
     Indication: RELAPSING-REMITTING MULTIPLE SCLEROSIS
     Route: 030
     Dates: start: 20091029
  2. AVONEX [Suspect]
     Active Substance: INTERFERON BETA-1A
     Route: 030
     Dates: start: 20091109

REACTIONS (5)
  - Deep vein thrombosis [Recovered/Resolved with Sequelae]
  - Muscle spasms [Unknown]
  - Pulmonary embolism [Not Recovered/Not Resolved]
  - Cast application [Unknown]
  - Obesity [Unknown]

NARRATIVE: CASE EVENT DATE: 201509
